FAERS Safety Report 15122090 (Version 2)
Quarter: 2018Q3

REPORT INFORMATION
  Report Type: Other
  Country: US (occurrence: FR)
  Receive Date: 20180709
  Receipt Date: 20180712
  Transmission Date: 20181010
  Serious: Yes (Other)
  Sender: FDA-Public Use
  Company Number: FR-BRECKENRIDGE PHARMACEUTICAL, INC.-2051586

PATIENT
  Age: 45 Year
  Sex: Male

DRUGS (1)
  1. TERBINAFINE. [Suspect]
     Active Substance: TERBINAFINE

REACTIONS (1)
  - Urinary retention [Recovered/Resolved]
